FAERS Safety Report 22399590 (Version 1)
Quarter: 2023Q2

REPORT INFORMATION
  Report Type: Spontaneous
  Country: US (occurrence: US)
  Receive Date: 20230602
  Receipt Date: 20230602
  Transmission Date: 20230722
  Serious: Yes (Other)
  Sender: FDA-Public Use
  Company Number: US-MYLANLABS-2023M1056500

PATIENT
  Age: 35 Year
  Sex: Male

DRUGS (3)
  1. POTASSIUM CHLORIDE [Suspect]
     Active Substance: POTASSIUM CHLORIDE
     Indication: Bowel preparation
     Dosage: UNK
     Route: 065
  2. MAGNESIUM SULFATE [Concomitant]
     Active Substance: MAGNESIUM SULFATE
     Indication: Bowel preparation
     Dosage: UNK
     Route: 065
  3. SODIUM SULFATE [Concomitant]
     Active Substance: SODIUM SULFATE
     Indication: Bowel preparation
     Dosage: UNK
     Route: 065

REACTIONS (2)
  - Epigastric discomfort [Recovered/Resolved]
  - Off label use [Unknown]
